FAERS Safety Report 18331117 (Version 3)
Quarter: 2020Q4

REPORT INFORMATION
  Report Type: Report from Study
  Country: CA (occurrence: CA)
  Receive Date: 20200930
  Receipt Date: 20201102
  Transmission Date: 20210113
  Serious: Yes (Hospitalization)
  Sender: FDA-Public Use
  Company Number: CA-JNJFOC-20200934013

PATIENT
  Age: 22 Year
  Sex: Female

DRUGS (3)
  1. STELARA [Suspect]
     Active Substance: USTEKINUMAB
     Indication: CROHN^S DISEASE
     Dosage: PATIENT RECEIVED 4TH DOSE OF 90MG ON 23/OCT/2020
     Route: 058
     Dates: start: 20200723
  2. STELARA [Suspect]
     Active Substance: USTEKINUMAB
     Dosage: OFF LABEL STAT DOSE
     Route: 058
  3. PREDNISONE. [Concomitant]
     Active Substance: PREDNISONE
     Indication: PRODUCT USED FOR UNKNOWN INDICATION
     Route: 065

REACTIONS (4)
  - Product use issue [Unknown]
  - Anal abscess [Recovering/Resolving]
  - Off label use [Unknown]
  - Abdominal abscess [Recovering/Resolving]

NARRATIVE: CASE EVENT DATE: 20200801
